FAERS Safety Report 7344850-0 (Version None)
Quarter: 2011Q1

REPORT INFORMATION
  Report Type: 
  Country: None (occurrence: None)
  Receive Date: 20110310
  Receipt Date: 20110303
  Transmission Date: 20110831
  Serious: Yes (Hospitalization)
  Sender: FDA-Public Use
  Company Number: ES-PFIZER INC-2011051967

PATIENT
  Age: 61 Year
  Sex: Male

DRUGS (2)
  1. CO-RENITEC [Suspect]
     Indication: HYPERTENSION
     Dosage: UNK
     Dates: start: 20060101
  2. ATARAX [Suspect]
     Indication: PRURITUS
     Dosage: UNK
     Route: 048
     Dates: start: 20060101, end: 20110201

REACTIONS (4)
  - ALDOLASE INCREASED [None]
  - MYOPATHY [None]
  - BLOOD CREATINE PHOSPHOKINASE INCREASED [None]
  - BLOOD LACTATE DEHYDROGENASE INCREASED [None]
